FAERS Safety Report 15941063 (Version 1)
Quarter: 2019Q1

REPORT INFORMATION
  Report Type: Report from Study
  Country: TR (occurrence: TR)
  Receive Date: 20190208
  Receipt Date: 20190208
  Transmission Date: 20190417
  Serious: Yes (Death)
  Sender: FDA-Public Use
  Company Number: TR-BIOGEN-2018BI00623391

PATIENT
  Age: 3 Year
  Sex: Female

DRUGS (5)
  1. SPINRAZA [Suspect]
     Active Substance: NUSINERSEN
     Indication: SPINAL MUSCULAR ATROPHY
     Route: 037
     Dates: start: 20171010, end: 20171010
  2. SPINRAZA [Suspect]
     Active Substance: NUSINERSEN
     Route: 037
     Dates: start: 20171027, end: 20171027
  3. SPINRAZA [Suspect]
     Active Substance: NUSINERSEN
     Route: 037
     Dates: start: 20180510, end: 20180510
  4. SPINRAZA [Suspect]
     Active Substance: NUSINERSEN
     Route: 037
     Dates: start: 20171114, end: 20171114
  5. SPINRAZA [Suspect]
     Active Substance: NUSINERSEN
     Route: 037
     Dates: start: 20171220, end: 20171220

REACTIONS (5)
  - Death [Fatal]
  - Feeding disorder [Unknown]
  - Respiratory disorder [Unknown]
  - Respiratory tract infection [Unknown]
  - Spinal muscular atrophy [Unknown]

NARRATIVE: CASE EVENT DATE: 20180623
